FAERS Safety Report 4784332-3 (Version None)
Quarter: 2005Q3

REPORT INFORMATION
  Report Type: 
  Country: None (occurrence: None)
  Receive Date: 20050930
  Receipt Date: 20050921
  Transmission Date: 20060218
  Serious: Yes (Other)
  Sender: FDA-Public Use
  Company Number: FR-JNJFOC-20050905542

PATIENT
  Sex: Male

DRUGS (2)
  1. HALDOL [Suspect]
     Route: 048
  2. DEPAKOTE [Interacting]
     Indication: DRUG USE FOR UNKNOWN INDICATION
     Route: 065

REACTIONS (2)
  - DRUG INTERACTION [None]
  - HYPERAMMONAEMIA [None]
